FAERS Safety Report 9707882 (Version 1)
Quarter: 2013Q4

REPORT INFORMATION
  Report Type: Spontaneous
  Country: US (occurrence: US)
  Receive Date: 20131125
  Receipt Date: 20131125
  Transmission Date: 20140711
  Serious: Yes (Hospitalization)
  Sender: FDA-Public Use
  Company Number: US-SA-2013SA121428

PATIENT
  Age: 56 Year
  Sex: Male
  Weight: 127 kg

DRUGS (3)
  1. LOVENOX [Suspect]
     Indication: ANTICOAGULANT THERAPY
     Route: 065
     Dates: start: 2013, end: 20131015
  2. ANTINEOPLASTIC AGENTS [Suspect]
     Indication: RENAL CANCER
     Route: 065
     Dates: start: 201106, end: 201310
  3. GLIPIZIDE [Concomitant]
     Indication: DIABETES MELLITUS

REACTIONS (3)
  - Urinary retention [Not Recovered/Not Resolved]
  - Urinary bladder haemorrhage [Not Recovered/Not Resolved]
  - Drug ineffective [Unknown]
